FAERS Safety Report 9804337 (Version 1)
Quarter: 2014Q1

REPORT INFORMATION
  Report Type: Spontaneous
  Country: FR (occurrence: None)
  Receive Date: 20140106
  Receipt Date: 20140106
  Transmission Date: 20141002
  Serious: Yes (Hospitalization)
  Sender: FDA-Public Use
  Company Number: 2013P1022288

PATIENT
  Age: 20 Year
  Sex: Female
  Weight: 45 kg

DRUGS (1)
  1. PYRIMETHAMINE [Suspect]
     Indication: EYE INFECTION TOXOPLASMAL

REACTIONS (11)
  - Hypersensitivity [None]
  - Hemiplegia [None]
  - Thrombocytopenia [None]
  - Microcytosis [None]
  - Antinuclear antibody positive [None]
  - Neurotoxicity [None]
  - Leukoencephalopathy [None]
  - Cerebrovascular accident [None]
  - Pseudobulbar palsy [None]
  - Dysphagia [None]
  - Eosinophilia [None]
